FAERS Safety Report 11230573 (Version 2)
Quarter: 2015Q3

REPORT INFORMATION
  Report Type: Report from Study
  Country: US (occurrence: US)
  Receive Date: 20150701
  Receipt Date: 20150902
  Transmission Date: 20151125
  Serious: Yes (Hospitalization, Other)
  Sender: FDA-Public Use
  Company Number: US-AMGEN-USASL2015062649

PATIENT
  Age: 56 Year
  Sex: Female

DRUGS (4)
  1. METHOTREXATE [Concomitant]
     Active Substance: METHOTREXATE
     Indication: ACUTE LYMPHOCYTIC LEUKAEMIA
     Dosage: UNK
     Dates: start: 20141111
  2. BLINCYTO [Suspect]
     Active Substance: BLINATUMOMAB
     Indication: ACUTE LYMPHOCYTIC LEUKAEMIA
     Dosage: 28 MUG, UNK
     Route: 042
     Dates: start: 20150525
  3. CYCLOPHOSPHAMIDE. [Concomitant]
     Active Substance: CYCLOPHOSPHAMIDE
     Indication: ACUTE LYMPHOCYTIC LEUKAEMIA
     Dosage: UNK
  4. GABAPENTIN. [Concomitant]
     Active Substance: GABAPENTIN
     Indication: NEUROPATHY PERIPHERAL
     Dosage: UNK

REACTIONS (18)
  - Pyrexia [Recovering/Resolving]
  - Platelet count decreased [Unknown]
  - Faecal incontinence [Recovering/Resolving]
  - Asthenia [Recovering/Resolving]
  - Lethargy [Recovering/Resolving]
  - Blast cell count increased [Unknown]
  - Diarrhoea [Recovering/Resolving]
  - Blood potassium decreased [Unknown]
  - Blood magnesium decreased [Unknown]
  - Petechiae [Unknown]
  - Amnesia [Recovering/Resolving]
  - Somnolence [Recovering/Resolving]
  - Restlessness [Recovering/Resolving]
  - White blood cell disorder [Unknown]
  - Ocular hyperaemia [Unknown]
  - Urinary incontinence [Recovering/Resolving]
  - Fatigue [Recovering/Resolving]
  - Blood uric acid increased [Unknown]

NARRATIVE: CASE EVENT DATE: 201505
